FAERS Safety Report 22005215 (Version 2)
Quarter: 2023Q1

REPORT INFORMATION
  Report Type: Report from Study
  Country: US (occurrence: US)
  Receive Date: 20230217
  Receipt Date: 20230323
  Transmission Date: 20230417
  Serious: Yes (Hospitalization, Other)
  Sender: FDA-Public Use
  Company Number: US-GILEAD-2023-0617097

PATIENT
  Age: 32 Year
  Sex: Male

DRUGS (9)
  1. AZTREONAM LYSINE [Suspect]
     Active Substance: AZTREONAM LYSINE
     Indication: Infective pulmonary exacerbation of cystic fibrosis
     Dosage: INHALE 1 VIAL AS DIRECTED VIA ALTERA NEBULIZER 3 TIMES PER DAY FOR 28 DAYS ON, 28 DAYS OFF
     Route: 055
  2. PULMOZYME [Concomitant]
     Active Substance: DORNASE ALFA
  3. URSODIOL [Concomitant]
     Active Substance: URSODIOL
  4. AZITHROMYCIN [Concomitant]
     Active Substance: AZITHROMYCIN
  5. MONTELUKAST SODIUM [Concomitant]
     Active Substance: MONTELUKAST SODIUM
  6. ALBUTEROL [Concomitant]
     Active Substance: ALBUTEROL
  7. CREON [Concomitant]
     Active Substance: PANCRELIPASE AMYLASE\PANCRELIPASE LIPASE\PANCRELIPASE PROTEASE
  8. COLISTIMETHATE SODIUM [Concomitant]
     Active Substance: COLISTIMETHATE SODIUM
  9. TRIKAFTA [Concomitant]
     Active Substance: ELEXACAFTOR\IVACAFTOR\TEZACAFTOR

REACTIONS (1)
  - Anaphylactic reaction [Unknown]
